FAERS Safety Report 21150793 (Version 1)
Quarter: 2022Q3

REPORT INFORMATION
  Report Type: Spontaneous
  Country: US (occurrence: US)
  Receive Date: 20220729
  Receipt Date: 20220729
  Transmission Date: 20221026
  Serious: No
  Sender: FDA-Public Use
  Company Number: US-BAUSCH-BL-2022-018629

PATIENT
  Age: 69 Year
  Weight: 74.910 kg

DRUGS (1)
  1. DEXAMETHASONE\NEOMYCIN\POLYMYXIN B SULFATE [Suspect]
     Active Substance: DEXAMETHASONE\NEOMYCIN\POLYMYXIN B SULFATE
     Indication: Eye infection
     Dosage: 2 OR 3 TIMES DAILY
     Route: 061
     Dates: start: 20220712, end: 20220720

REACTIONS (5)
  - Vision blurred [Unknown]
  - Ocular discomfort [Unknown]
  - Application site pain [Unknown]
  - Intentional product use issue [Unknown]
  - Off label use [Unknown]
